FAERS Safety Report 10394183 (Version 3)
Quarter: 2014Q4

REPORT INFORMATION
  Report Type: Spontaneous
  Country: JP (occurrence: JP)
  Receive Date: 20140819
  Receipt Date: 20141020
  Transmission Date: 20150528
  Serious: Yes (Hospitalization)
  Sender: FDA-Public Use
  Company Number: PHHY2013JP161583

PATIENT
  Age: 61 Year
  Sex: Female
  Weight: 70 kg

DRUGS (2)
  1. EXJADE [Suspect]
     Active Substance: DEFERASIROX
     Indication: OFF LABEL USE
     Route: 065
     Dates: start: 201110
  2. EXJADE [Suspect]
     Active Substance: DEFERASIROX
     Indication: HYPEREOSINOPHILIC SYNDROME
     Dosage: 20 MG/KG, UNK
     Route: 065
     Dates: start: 201108

REACTIONS (2)
  - Ulcer [Unknown]
  - Compression fracture [Unknown]

NARRATIVE: CASE EVENT DATE: 201112
